FAERS Safety Report 25750688 (Version 1)
Quarter: 2025Q3

REPORT INFORMATION
  Report Type: Spontaneous
  Country: IN (occurrence: IN)
  Receive Date: 20250902
  Receipt Date: 20250902
  Transmission Date: 20251021
  Serious: Yes (Death)
  Sender: MYLAN
  Company Number: IN-MYLANLABS-2025M1073947

PATIENT
  Age: 48 Year
  Sex: Female

DRUGS (8)
  1. ETOPOSIDE [Suspect]
     Active Substance: ETOPOSIDE
     Indication: Hepatic cancer
  2. ETOPOSIDE [Suspect]
     Active Substance: ETOPOSIDE
     Indication: Leiomyosarcoma
     Route: 065
  3. ETOPOSIDE [Suspect]
     Active Substance: ETOPOSIDE
     Route: 065
  4. ETOPOSIDE [Suspect]
     Active Substance: ETOPOSIDE
  5. IFOSFAMIDE [Suspect]
     Active Substance: IFOSFAMIDE
     Indication: Hepatic cancer
  6. IFOSFAMIDE [Suspect]
     Active Substance: IFOSFAMIDE
     Indication: Leiomyosarcoma
     Route: 065
  7. IFOSFAMIDE [Suspect]
     Active Substance: IFOSFAMIDE
     Route: 065
  8. IFOSFAMIDE [Suspect]
     Active Substance: IFOSFAMIDE

REACTIONS (2)
  - Drug ineffective for unapproved indication [Fatal]
  - Off label use [Unknown]
